FAERS Safety Report 4811529-6 (Version None)
Quarter: 2005Q4

REPORT INFORMATION
  Report Type: 
  Country: None (occurrence: None)
  Receive Date: 20051025
  Receipt Date: 20051010
  Transmission Date: 20060501
  Serious: Yes (Hospitalization, Other)
  Sender: FDA-Public Use
  Company Number: 2005-01885

PATIENT
  Age: 61 Year
  Sex: Male
  Weight: 77 kg

DRUGS (5)
  1. VELCADE [Suspect]
     Indication: MULTIPLE MYELOMA
     Dosage: 2.50 MG, 2/WEEK, INTRAVENOUS
     Route: 042
     Dates: start: 20050726, end: 20050826
  2. VELCADE [Suspect]
     Indication: MULTIPLE MYELOMA
     Dosage: 2.50 MG, 2/WEEK, INTRAVENOUS
     Route: 042
     Dates: start: 20050913
  3. TRAMADOL HCL [Concomitant]
  4. ALLOPURINOL [Concomitant]
  5. EFFEXOR [Concomitant]

REACTIONS (13)
  - ABDOMINAL DISTENSION [None]
  - ANAEMIA [None]
  - BLOOD PRESSURE INCREASED [None]
  - BRAIN NATRIURETIC PEPTIDE INCREASED [None]
  - CARDIAC FAILURE [None]
  - EJECTION FRACTION DECREASED [None]
  - LEFT VENTRICULAR FAILURE [None]
  - LUNG CONSOLIDATION [None]
  - MITRAL VALVE INCOMPETENCE [None]
  - PLEURAL EFFUSION [None]
  - PULMONARY CONGESTION [None]
  - PULMONARY OEDEMA [None]
  - WEIGHT DECREASED [None]
